FAERS Safety Report 8115362-1 (Version None)
Quarter: 2012Q1

REPORT INFORMATION
  Report Type: 
  Country: None (occurrence: None)
  Receive Date: 20120206
  Receipt Date: 20120206
  Transmission Date: 20120608
  Serious: Yes (Other)
  Sender: FDA-Public Use
  Company Number: None

PATIENT
  Age: 53 Year
  Sex: Male
  Weight: 72.574 kg

DRUGS (2)
  1. OXYCONTIN [Concomitant]
     Dosage: 60 MG.
     Route: 048
     Dates: start: 20100605, end: 20120203
  2. OXYCONTIN [Suspect]
     Indication: PAIN
     Dosage: 40 MG.
     Route: 048
     Dates: start: 20030801, end: 20120203

REACTIONS (2)
  - PRODUCT SUBSTITUTION ISSUE [None]
  - PRODUCT FORMULATION ISSUE [None]
